FAERS Safety Report 24338071 (Version 1)
Quarter: 2024Q3

REPORT INFORMATION
  Report Type: Report from Study
  Country: US (occurrence: US)
  Receive Date: 20240919
  Receipt Date: 20240919
  Transmission Date: 20241017
  Serious: Yes (Hospitalization)
  Sender: ROCHE
  Company Number: US-ROCHE-10000080044

PATIENT
  Age: 77 Year
  Sex: Female

DRUGS (3)
  1. XOLAIR PFS [Suspect]
     Active Substance: OMALIZUMAB
     Indication: Asthma
     Dosage: 75 MG, 150 MG STRENGTH
     Route: 058
  2. XOLAIR PFS [Suspect]
     Active Substance: OMALIZUMAB
     Indication: Bronchitis chronic
  3. XOLAIR PFS [Suspect]
     Active Substance: OMALIZUMAB
     Indication: Emphysema

REACTIONS (1)
  - Intestinal obstruction [Unknown]
